FAERS Safety Report 7937686-0 (Version None)
Quarter: 2011Q4

REPORT INFORMATION
  Report Type: 
  Country: None (occurrence: None)
  Receive Date: 20111123
  Receipt Date: 20111115
  Transmission Date: 20120403
  Serious: Yes (Other)
  Sender: FDA-Public Use
  Company Number: PHEH2011US009574

PATIENT
  Sex: Male

DRUGS (2)
  1. SANDOSTATIN LAR [Suspect]
  2. AFINITOR [Suspect]
     Indication: MALIGNANT NEOPLASM OF ISLETS OF LANGERHANS
     Dosage: 10 MG, QD

REACTIONS (2)
  - MALIGNANT NEOPLASM OF EYE [None]
  - CONVULSION [None]
